FAERS Safety Report 4513518-8 (Version None)
Quarter: 2004Q4

REPORT INFORMATION
  Report Type: 
  Country: None (occurrence: None)
  Receive Date: 20041130
  Receipt Date: 20041119
  Transmission Date: 20050328
  Serious: Yes (Hospitalization, Other)
  Sender: FDA-Public Use
  Company Number: US-JNJFOC-20040906745

PATIENT
  Age: 52 Year
  Sex: Female
  Weight: 53.52 kg

DRUGS (7)
  1. LEVAQUIN [Suspect]
     Route: 042
  2. LEVAQUIN [Suspect]
     Route: 049
  3. TYLENOL (CAPLET) [Concomitant]
  4. SULFA [Concomitant]
  5. SULFA [Concomitant]
  6. SULFA [Concomitant]
  7. SULFA [Concomitant]

REACTIONS (27)
  - ACUTE RESPIRATORY DISTRESS SYNDROME [None]
  - BLOOD ALBUMIN DECREASED [None]
  - BLOOD CHOLESTEROL INCREASED [None]
  - BLOOD GLUCOSE INCREASED [None]
  - BLOOD UREA DECREASED [None]
  - CHOLECYSTITIS [None]
  - DELIRIUM [None]
  - DRUG HYPERSENSITIVITY [None]
  - ENCEPHALOPATHY [None]
  - FLUID OVERLOAD [None]
  - HEPATIC FAILURE [None]
  - HEPATIC TRAUMA [None]
  - HEPATOCELLULAR DAMAGE [None]
  - HEPATOTOXICITY [None]
  - KLEBSIELLA INFECTION [None]
  - LEUKOPENIA [None]
  - NEUTROPENIA [None]
  - NORMOCHROMIC NORMOCYTIC ANAEMIA [None]
  - PLATELET COUNT INCREASED [None]
  - PYREXIA [None]
  - RASH GENERALISED [None]
  - RENAL FAILURE ACUTE [None]
  - RENAL TUBULAR NECROSIS [None]
  - RESPIRATORY FAILURE [None]
  - STAPHYLOCOCCAL BACTERAEMIA [None]
  - TRACHEOBRONCHITIS [None]
  - URINARY TRACT INFECTION [None]
